FAERS Safety Report 17223793 (Version 4)
Quarter: 2021Q1

REPORT INFORMATION
  Report Type: Spontaneous
  Country: US (occurrence: US)
  Receive Date: 20200102
  Receipt Date: 20210222
  Transmission Date: 20210419
  Serious: No
  Sender: FDA-Public Use
  Company Number: US-GLAXOSMITHKLINE-US2019AMR237673

PATIENT
  Sex: Female

DRUGS (1)
  1. NUCALA [Suspect]
     Active Substance: MEPOLIZUMAB
     Indication: ASTHMA
     Dosage: 100 MG, CYC EVERY 28 DAYS
     Route: 065
     Dates: start: 2017

REACTIONS (8)
  - Fatigue [Unknown]
  - Asthma [Recovered/Resolved]
  - Adverse drug reaction [Unknown]
  - Arthralgia [Unknown]
  - Injection site pain [Unknown]
  - Condition aggravated [Unknown]
  - Respiratory disorder [Unknown]
  - Dyspnoea [Unknown]

NARRATIVE: CASE EVENT DATE: 2019
